FAERS Safety Report 9275040 (Version 2)
Quarter: 2013Q2

REPORT INFORMATION
  Report Type: Spontaneous
  Country: US (occurrence: None)
  Receive Date: 20130430
  Receipt Date: 20130517
  Transmission Date: 20140414
  Serious: Yes (Other)
  Sender: FDA-Public Use
  Company Number: 1679575

PATIENT
  Age: 72 Year
  Sex: Female
  Weight: 90.91 kg

DRUGS (1)
  1. SODIUM CHLORIDE [Suspect]
     Indication: BLOOD SODIUM DECREASED
     Route: 042

REACTIONS (7)
  - Nausea [None]
  - Arthralgia [None]
  - Neck pain [None]
  - Vomiting [None]
  - Diarrhoea [None]
  - Vasodilatation [None]
  - Joint swelling [None]
